FAERS Safety Report 7582943-3 (Version None)
Quarter: 2011Q2

REPORT INFORMATION
  Report Type: 
  Country: None (occurrence: None)
  Receive Date: 20110630
  Receipt Date: 20090930
  Transmission Date: 20111010
  Serious: Yes (Other)
  Sender: FDA-Public Use
  Company Number: US-BAYER-2011-008791

PATIENT
  Age: 49 Year
  Sex: Female
  Weight: 98 kg

DRUGS (13)
  1. LABETALOL HCL [Concomitant]
     Dosage: 20 MG, UNK
     Route: 048
  2. PROCARDIA XL [Concomitant]
     Dosage: 90 MG, UNK
     Route: 048
  3. MANNITOL [Concomitant]
     Dosage: 12.5 G, UNK
     Route: 042
     Dates: start: 20040113, end: 20040113
  4. LIDOCAINE [Concomitant]
     Dosage: UNK
     Route: 042
     Dates: start: 20040113, end: 20040113
  5. APRESOLINE [Concomitant]
     Dosage: 100 MG, UNK
     Route: 048
  6. ALLOPURINOL [Concomitant]
     Dosage: 300 MG, UNK
     Route: 048
  7. TRASYLOL [Suspect]
     Dosage: EXTREMELY POOR LEGIBILITY OF RECORD. 3 VIALS OF APROTININ USED
     Dates: start: 20040113, end: 20040113
  8. LASIX [Concomitant]
     Dosage: 40 MG, UNK
     Route: 048
  9. HEPARIN [Concomitant]
     Dosage: 10,000 UNITS
     Route: 042
     Dates: start: 20040113, end: 20040113
  10. NIPRIDE [Concomitant]
     Dosage: 50 MG, UNK
     Route: 042
     Dates: start: 20040113, end: 20040113
  11. TRASYLOL [Suspect]
     Indication: MITRAL VALVE REPLACEMENT
     Dosage: 1 ML, UNK
     Dates: start: 20040113, end: 20040113
  12. ANCEF [Concomitant]
     Dosage: 1 G, UNK
     Route: 042
     Dates: start: 20040113, end: 20040113
  13. NORVASC [Concomitant]
     Dosage: 10 MG, UNK
     Route: 048

REACTIONS (12)
  - RENAL FAILURE [None]
  - RENAL INJURY [None]
  - UNEVALUABLE EVENT [None]
  - EMOTIONAL DISTRESS [None]
  - FEAR OF DEATH [None]
  - FEAR [None]
  - INJURY [None]
  - PAIN [None]
  - DEPRESSION [None]
  - ANXIETY [None]
  - MULTI-ORGAN FAILURE [None]
  - NERVOUSNESS [None]
